FAERS Safety Report 14826199 (Version 1)
Quarter: 2018Q2

REPORT INFORMATION
  Report Type: Spontaneous
  Country: US (occurrence: US)
  Receive Date: 20180403
  Receipt Date: 20180403
  Transmission Date: 20180711
  Serious: Yes (Other)
  Sender: FDA-Public Use
  Company Number: None

PATIENT
  Age: 63 Year
  Sex: Male

DRUGS (1)
  1. INDOCYANINE GREEN. [Suspect]
     Active Substance: INDOCYANINE GREEN
     Route: 042
     Dates: start: 20180124, end: 20180124

REACTIONS (3)
  - Nausea [None]
  - Back pain [None]
  - Infusion related reaction [None]

NARRATIVE: CASE EVENT DATE: 20180124
